FAERS Safety Report 5801934-3 (Version None)
Quarter: 2008Q3

REPORT INFORMATION
  Report Type: 
  Country: None (occurrence: None)
  Receive Date: 20080707
  Receipt Date: 20080626
  Transmission Date: 20090109
  Serious: Yes (Death, Hospitalization, Other)
  Sender: FDA-Public Use
  Company Number: US-ROCHE-550002

PATIENT
  Age: 78 Year
  Sex: Male

DRUGS (9)
  1. XELODA [Suspect]
     Indication: BILIARY CANCER METASTATIC
     Route: 065
     Dates: start: 20080205, end: 20080210
  2. GEMZAR [Concomitant]
     Indication: BILIARY CANCER METASTATIC
     Dates: start: 20080205
  3. DILTIAZAM [Concomitant]
  4. WARFARIN SODIUM [Concomitant]
  5. SPIRONOLACTONE [Concomitant]
  6. ACIPHEX [Concomitant]
  7. VALCYTE [Concomitant]
  8. ALEVE [Concomitant]
  9. VITAMIN E [Concomitant]

REACTIONS (28)
  - ABDOMINAL PAIN [None]
  - ANOREXIA [None]
  - ASPERGILLOSIS [None]
  - ATELECTASIS [None]
  - BILIARY CANCER METASTATIC [None]
  - BLOOD ALKALINE PHOSPHATASE INCREASED [None]
  - BLOOD UREA INCREASED [None]
  - BONE MARROW FAILURE [None]
  - CARDIOMEGALY [None]
  - CHEST PAIN [None]
  - DEHYDRATION [None]
  - DIARRHOEA [None]
  - DIVERTICULUM [None]
  - FIBROSIS [None]
  - LYMPHADENOPATHY [None]
  - LYMPHATIC DISORDER [None]
  - MENTAL STATUS CHANGES [None]
  - MUCOSAL INFLAMMATION [None]
  - MUSCULOSKELETAL PAIN [None]
  - NEUTROPENIA [None]
  - PLATELET COUNT DECREASED [None]
  - PULMONARY OEDEMA [None]
  - RED BLOOD CELL COUNT DECREASED [None]
  - RESPIRATORY FAILURE [None]
  - SEPSIS [None]
  - SPLEEN DISORDER [None]
  - SWOLLEN TONGUE [None]
  - WHITE BLOOD CELL COUNT DECREASED [None]
